FAERS Safety Report 6731327-6 (Version None)
Quarter: 2010Q2

REPORT INFORMATION
  Report Type: 
  Country: None (occurrence: None)
  Receive Date: 20100517
  Receipt Date: 20100517
  Transmission Date: 20101027
  Serious: Yes (Other)
  Sender: FDA-Public Use
  Company Number: None

PATIENT
  Age: 67 Year
  Sex: Female
  Weight: 81.6475 kg

DRUGS (1)
  1. ACTOS [Suspect]
     Indication: DIABETES MELLITUS
     Dosage: 1 PILL ONCE A DAY PO
     Route: 048
     Dates: start: 20100307, end: 20100310

REACTIONS (8)
  - APPARENT DEATH [None]
  - ARTHRALGIA [None]
  - GAIT DISTURBANCE [None]
  - HEADACHE [None]
  - IMPAIRED WORK ABILITY [None]
  - JOINT SWELLING [None]
  - MUSCULOSKELETAL STIFFNESS [None]
  - NAUSEA [None]
